FAERS Safety Report 10889826 (Version 2)
Quarter: 2015Q1

REPORT INFORMATION
  Report Type: Report from Study
  Country: CA (occurrence: CA)
  Receive Date: 20150305
  Receipt Date: 20150319
  Transmission Date: 20150721
  Serious: Yes (Hospitalization)
  Sender: FDA-Public Use
  Company Number: CA-ABBVIE-15K-028-1354685-00

PATIENT
  Sex: Female
  Weight: 96.25 kg

DRUGS (1)
  1. HUMIRA [Suspect]
     Active Substance: ADALIMUMAB
     Indication: CROHN^S DISEASE
     Route: 058
     Dates: start: 20100705

REACTIONS (5)
  - Foot deformity [Not Recovered/Not Resolved]
  - Nasopharyngitis [Unknown]
  - Finger deformity [Not Recovered/Not Resolved]
  - Respiratory tract infection bacterial [Unknown]
  - Arthritis [Not Recovered/Not Resolved]
